FAERS Safety Report 7726681-2 (Version None)
Quarter: 2011Q3

REPORT INFORMATION
  Report Type: 
  Country: None (occurrence: None)
  Receive Date: 20110902
  Receipt Date: 20110902
  Transmission Date: 20111222
  Serious: Yes (Life-Threatening)
  Sender: FDA-Public Use
  Company Number: None

PATIENT
  Age: 56 Year
  Sex: Female

DRUGS (1)
  1. NEXAVAR [Suspect]
     Indication: RENAL CANCER
     Dosage: 400MG
     Route: 048
     Dates: start: 20110605, end: 20110831

REACTIONS (6)
  - PALPITATIONS [None]
  - GENITAL BURNING SENSATION [None]
  - SUICIDAL IDEATION [None]
  - HALLUCINATION [None]
  - BURNING SENSATION [None]
  - HYPERHIDROSIS [None]
